FAERS Safety Report 13427163 (Version 3)
Quarter: 2017Q3

REPORT INFORMATION
  Report Type: Report from Study
  Country: GB (occurrence: GB)
  Receive Date: 20170411
  Receipt Date: 20170816
  Transmission Date: 20171127
  Serious: Yes (Hospitalization)
  Sender: FDA-Public Use
  Company Number: GB-BRISTOL-MYERS SQUIBB COMPANY-BMS-2017-018882

PATIENT
  Sex: Female

DRUGS (1)
  1. ABATACEPT [Suspect]
     Active Substance: ABATACEPT
     Indication: RHEUMATOID ARTHRITIS
     Dosage: 125 MG, QWK
     Route: 058
     Dates: start: 20160115

REACTIONS (6)
  - Syringe issue [Unknown]
  - Drug dose omission [Unknown]
  - Knee operation [Unknown]
  - Urinary tract infection [Unknown]
  - Accidental exposure to product [Unknown]
  - Device malfunction [Unknown]
